FAERS Safety Report 10220549 (Version 1)
Quarter: 2014Q2

REPORT INFORMATION
  Report Type: Spontaneous
  Country: CN (occurrence: None)
  Receive Date: 20140604
  Receipt Date: 20140604
  Transmission Date: 20141212
  Serious: Yes (Other)
  Sender: FDA-Public Use
  Company Number: IMP_07670_2014

PATIENT
  Age: 24 Month
  Sex: Male

DRUGS (3)
  1. VALPROIC ACID (VALPROIC ACID) [Suspect]
     Indication: EPILEPSY
     Dosage: 7 WEEKS 6 DAYS UNTIL NOT CONTINUING
  2. LEVETIRACETAM [Concomitant]
  3. TOPIRAMATE [Concomitant]

REACTIONS (2)
  - Hepatotoxicity [None]
  - Alpers^ disease [None]
